FAERS Safety Report 16123951 (Version 1)
Quarter: 2019Q1

REPORT INFORMATION
  Report Type: Report from Study
  Country: US (occurrence: US)
  Receive Date: 20190327
  Receipt Date: 20190327
  Transmission Date: 20190418
  Serious: Yes (Other)
  Sender: FDA-Public Use
  Company Number: US-GILEAD-2019-0398869

PATIENT
  Age: 58 Year
  Sex: Male

DRUGS (1)
  1. AZTREONAM LYSINE [Suspect]
     Active Substance: AZTREONAM LYSINE
     Indication: LUNG INFECTION PSEUDOMONAL
     Dosage: UNK
     Route: 055
     Dates: start: 201803

REACTIONS (2)
  - Off label use [Not Recovered/Not Resolved]
  - Lung infection pseudomonal [Unknown]
